FAERS Safety Report 19041521 (Version 1)
Quarter: 2021Q1

REPORT INFORMATION
  Report Type: Spontaneous
  Country: DE (occurrence: DE)
  Receive Date: 20210322
  Receipt Date: 20210322
  Transmission Date: 20210420
  Serious: Yes (Hospitalization)
  Sender: FDA-Public Use
  Company Number: DE-TASMAN PHARMA, INC.-2021TSM00013

PATIENT
  Age: 28 Year
  Sex: Male

DRUGS (1)
  1. CLOZAPINE. [Suspect]
     Active Substance: CLOZAPINE
     Dosage: 8 MG
     Route: 048

REACTIONS (7)
  - Rhabdomyolysis [Recovered/Resolved]
  - Septic shock [Recovered/Resolved]
  - Acute kidney injury [Recovered/Resolved]
  - Pneumomediastinum [Recovered/Resolved]
  - Anticholinergic syndrome [Recovered/Resolved]
  - Intentional overdose [Recovered/Resolved]
  - Toxicity to various agents [Recovered/Resolved]
